FAERS Safety Report 25868610 (Version 1)
Quarter: 2025Q4

REPORT INFORMATION
  Report Type: Spontaneous
  Country: US (occurrence: US)
  Receive Date: 20251001
  Receipt Date: 20251001
  Transmission Date: 20260117
  Serious: Yes (Other)
  Sender: ORGANON
  Company Number: US-ORGANON-O2509USA002269

PATIENT
  Age: 69 Year
  Sex: Female

DRUGS (9)
  1. LOSARTAN POTASSIUM [Suspect]
     Active Substance: LOSARTAN POTASSIUM
     Dosage: UNK
  2. ZOCOR [Suspect]
     Active Substance: SIMVASTATIN
     Dosage: UNK
  3. XELJANZ XR [Suspect]
     Active Substance: TOFACITINIB CITRATE
     Indication: Arthritis
     Dosage: 5 MILLIGRAM, BID
  4. XELJANZ XR [Suspect]
     Active Substance: TOFACITINIB CITRATE
     Dosage: 11 MILLIGRAM, QD (AT NIGHT)
  5. HYDROCHLOROTHIAZIDE [Suspect]
     Active Substance: HYDROCHLOROTHIAZIDE
     Indication: Blood pressure abnormal
     Dosage: UNK
     Route: 065
  6. CARVEDILOL [Suspect]
     Active Substance: CARVEDILOL
     Dosage: UNK
  7. METFORMIN [Suspect]
     Active Substance: METFORMIN HYDROCHLORIDE
     Dosage: UNK
  8. INSULIN NOS [Concomitant]
     Active Substance: INSULIN NOS
  9. JARDIANCE [Concomitant]
     Active Substance: EMPAGLIFLOZIN

REACTIONS (5)
  - Blindness [Unknown]
  - Nausea [Unknown]
  - Malaise [Unknown]
  - Product storage error [Unknown]
  - Illness [Unknown]
